FAERS Safety Report 4567479-6 (Version None)
Quarter: 2005Q1

REPORT INFORMATION
  Report Type: 
  Country: None (occurrence: None)
  Receive Date: 20050127
  Receipt Date: 20050111
  Transmission Date: 20050727
  Serious: Yes (Hospitalization)
  Sender: FDA-Public Use
  Company Number: DSA_25643_2005

PATIENT
  Age: 70 Year
  Sex: Male

DRUGS (6)
  1. DILTIAZEM HCL [Suspect]
     Indication: ATRIAL FLUTTER
     Dosage: 100 MG Q DAY PO
     Route: 048
     Dates: start: 20031229, end: 20041221
  2. DILTIAZEM HCL [Suspect]
     Indication: HYPERTENSION
     Dosage: 100 MG Q DAY PO
     Route: 048
     Dates: start: 20031229, end: 20041221
  3. DIOVAN [Concomitant]
  4. FRANDOL [Concomitant]
  5. CONIEL [Concomitant]
  6. ITRIZOLE [Concomitant]

REACTIONS (1)
  - BRADYCARDIA [None]
